FAERS Safety Report 12875086 (Version 1)
Quarter: 2016Q4

REPORT INFORMATION
  Report Type: Spontaneous
  Country: US (occurrence: US)
  Receive Date: 20161023
  Receipt Date: 20161023
  Transmission Date: 20170207
  Serious: No
  Sender: FDA-Public Use
  Company Number: US-ASTRAZENECA-2016SF11064

PATIENT
  Age: 91 Year
  Sex: Female
  Weight: 52.2 kg

DRUGS (5)
  1. RHINOCORT ALLERGY [Suspect]
     Active Substance: BUDESONIDE
     Indication: SEASONAL ALLERGY
     Dosage: 2 SQUIRTS IN EACH NOSTRIL DAILY
     Route: 055
  2. RHINOCORT ALLERGY [Suspect]
     Active Substance: BUDESONIDE
     Indication: SEASONAL ALLERGY
     Dosage: 2 SQUIRTS IN EACH NOSTRIL DAILY
     Route: 055
  3. RHINOCORT ALLERGY [Suspect]
     Active Substance: BUDESONIDE
     Indication: NASAL CONGESTION
     Dosage: 2 SQUIRTS IN EACH NOSTRIL DAILY
     Route: 055
  4. AUGMENTIN [Concomitant]
     Active Substance: AMOXICILLIN\CLAVULANATE POTASSIUM
     Indication: PRODUCT USED FOR UNKNOWN INDICATION
     Dosage: DOSAGE FORM: UNSPECIFIED
     Route: 065
  5. RHINOCORT ALLERGY [Suspect]
     Active Substance: BUDESONIDE
     Indication: NASAL CONGESTION
     Dosage: 2 SQUIRTS IN EACH NOSTRIL DAILY
     Route: 055

REACTIONS (3)
  - Ear discomfort [Unknown]
  - Ear pruritus [Unknown]
  - Therapeutic response decreased [Unknown]
